FAERS Safety Report 5479293-8 (Version None)
Quarter: 2007Q4

REPORT INFORMATION
  Report Type: 
  Country: None (occurrence: None)
  Receive Date: 20071003
  Receipt Date: 20070924
  Transmission Date: 20080405
  Serious: Yes (Hospitalization)
  Sender: FDA-Public Use
  Company Number: 161982USA

PATIENT
  Age: 63 Year
  Sex: Male

DRUGS (1)
  1. COPAXONE [Suspect]
     Indication: MULTIPLE SCLEROSIS
     Dosage: (20 MG, SUBCUTANEOUS)
     Route: 058
     Dates: start: 20070422

REACTIONS (1)
  - PROSTATE CANCER [None]
